FAERS Safety Report 11193189 (Version 1)
Quarter: 2015Q2

REPORT INFORMATION
  Report Type: Spontaneous
  Country: US (occurrence: None)
  Receive Date: 20150615
  Receipt Date: 20150615
  Transmission Date: 20150821
  Serious: No
  Sender: FDA-Public Use
  Company Number: None

PATIENT
  Age: 73 Year
  Sex: Male

DRUGS (1)
  1. SUTENT [Suspect]
     Active Substance: SUNITINIB MALATE
     Indication: RENAL CELL CARCINOMA
     Route: 048
     Dates: start: 20150527, end: 201506

REACTIONS (7)
  - Constipation [None]
  - Stomatitis [None]
  - Fatigue [None]
  - Nausea [None]
  - Arthralgia [None]
  - Abdominal pain [None]
  - Dysgeusia [None]

NARRATIVE: CASE EVENT DATE: 20150527
